FAERS Safety Report 5912277-1 (Version None)
Quarter: 2008Q4

REPORT INFORMATION
  Report Type: 
  Country: None (occurrence: None)
  Receive Date: 20081008
  Receipt Date: 20081003
  Transmission Date: 20090506
  Serious: Yes (Hospitalization)
  Sender: FDA-Public Use
  Company Number: JP-BAYER-200812127BYL

PATIENT
  Age: 34 Year
  Sex: Male
  Weight: 85 kg

DRUGS (6)
  1. NEXAVAR [Suspect]
     Indication: RENAL CELL CARCINOMA STAGE IV
     Dosage: UNIT DOSE: 200 MG
     Route: 048
     Dates: start: 20080609, end: 20080901
  2. CALONAL [Concomitant]
     Route: 048
     Dates: start: 20080609, end: 20080618
  3. CALONAL [Concomitant]
     Route: 048
     Dates: start: 20080907
  4. AMOBAN [Concomitant]
     Dosage: AS USED: 7.5 MG
     Route: 048
     Dates: start: 20080907
  5. GASMOTIN [Concomitant]
     Dosage: AS USED: 15 MG
     Route: 048
     Dates: start: 20080908, end: 20080911
  6. NAIXAN [Concomitant]
     Dosage: AS USED: 300 MG
     Route: 048
     Dates: start: 20080909, end: 20080915

REACTIONS (4)
  - DIARRHOEA [None]
  - PALMAR-PLANTAR ERYTHRODYSAESTHESIA SYNDROME [None]
  - PATHOLOGICAL FRACTURE [None]
  - PNEUMOTHORAX [None]
